FAERS Safety Report 16666065 (Version 2)
Quarter: 2019Q4

REPORT INFORMATION
  Report Type: Spontaneous
  Country: IL (occurrence: IL)
  Receive Date: 20190805
  Receipt Date: 20191021
  Transmission Date: 20200122
  Serious: Yes (Hospitalization, Other)
  Sender: FDA-Public Use
  Company Number: IL-BRISTOL-MYERS SQUIBB COMPANY-BMS-2019-073988

PATIENT
  Age: 72 Year
  Sex: Male

DRUGS (2)
  1. NIVOLUMAB [Suspect]
     Active Substance: NIVOLUMAB
     Indication: METASTATIC MALIGNANT MELANOMA
     Dosage: 1 MILLIGRAM, 1TREATMENT
     Route: 065
     Dates: start: 20190613
  2. IPILIMUMAB [Suspect]
     Active Substance: IPILIMUMAB
     Indication: METASTATIC MALIGNANT MELANOMA
     Dosage: 3 MILLIGRAM
     Route: 065
     Dates: start: 20190613

REACTIONS (6)
  - Arthralgia [Unknown]
  - Fatigue [Unknown]
  - Myocarditis [Unknown]
  - Visual impairment [Unknown]
  - Myositis [Unknown]
  - Vertigo [Unknown]

NARRATIVE: CASE EVENT DATE: 20190701
